FAERS Safety Report 8551237 (Version 3)
Quarter: 2012Q4

REPORT INFORMATION
  Report Type: Report from Study
  Country: US (occurrence: US)
  Receive Date: 20120508
  Receipt Date: 20121003
  Transmission Date: 20130627
  Serious: Yes (Death, Hospitalization)
  Sender: FDA-Public Use
  Company Number: US-BAYER-2012-041594

PATIENT
  Age: 75 Year
  Sex: Male

DRUGS (6)
  1. BAYER GENUINE ASPIRIN ORIGINAL STRENGTH [Suspect]
     Dosage: 325 mg, UNK
  2. SAXAGLIPTIN [Suspect]
     Indication: TYPE 2 DIABETES MELLITUS
     Dosage: UNK
     Dates: start: 20110324, end: 20110517
  3. METFORMIN HCL [Suspect]
     Dosage: Daily dose 2000 mg
  4. CLOPIDOGREL BISULFATE [Suspect]
     Dosage: 75 mg, UNK
  5. GLIBENCLAMIDE [Concomitant]
     Indication: TYPE 2 DIABETES MELLITUS
     Dosage: Daily dose 10 mg
  6. ANGIOTENSIN II ANTAGONISTS AND DIURETICS [Concomitant]

REACTIONS (7)
  - Cerebrovascular accident [Fatal]
  - Gastrointestinal haemorrhage [None]
  - Gastric ulcer [None]
  - Haemorrhagic anaemia [None]
  - Haematemesis [None]
  - Faeces discoloured [None]
  - Asthenia [None]
